FAERS Safety Report 4386374-9 (Version None)
Quarter: 2004Q2

REPORT INFORMATION
  Report Type: 
  Country: None (occurrence: None)
  Receive Date: 20040623
  Receipt Date: 20040603
  Transmission Date: 20050107
  Serious: Yes (Disabling)
  Sender: FDA-Public Use
  Company Number: EWC040639538

PATIENT
  Age: 57 Year
  Sex: Female

DRUGS (1)
  1. EVISTA [Suspect]
     Indication: OSTEOPOROSIS
     Dosage: 60 MG/1D
     Dates: start: 20040326, end: 20040505

REACTIONS (4)
  - ABASIA [None]
  - DYSPEPSIA [None]
  - PAIN IN EXTREMITY [None]
  - PARALYSIS [None]
